FAERS Safety Report 8583401 (Version 2)
Quarter: 2012Q4

REPORT INFORMATION
  Report Type: 
  Country: BR (occurrence: BR)
  Receive Date: 20120529
  Receipt Date: 20120914
  Transmission Date: 20130627
  Serious: Yes (Other)
  Sender: FDA-Public Use
  Company Number: BR-JNJFOC-20120407873

PATIENT
  Age: 16 Year
  Sex: Male
  Weight: 83 kg

DRUGS (16)
  1. INVEGA [Suspect]
     Indication: SCHIZOPHRENIA
     Route: 048
     Dates: start: 2012, end: 2012
  2. INVEGA [Suspect]
     Indication: SCHIZOPHRENIA
     Dosage: 2 tablets of 3 mg at 9 AM
     Route: 048
     Dates: start: 2012
  3. INVEGA [Suspect]
     Indication: SCHIZOPHRENIA
     Route: 048
     Dates: start: 20120512, end: 20120516
  4. INVEGA SUSTENNA [Suspect]
     Indication: PSYCHOTIC DISORDER
     Route: 030
     Dates: start: 20120410
  5. INVEGA SUSTENNA [Suspect]
     Indication: SCHIZOPHRENIA
     Route: 030
     Dates: start: 20120410
  6. RIVOTRIL [Concomitant]
     Indication: SCHIZOPHRENIA
     Dosage: 8 drops at 9AM and 15 drops at 9 PM
     Route: 065
     Dates: start: 2012
  7. AKINETON [Concomitant]
     Route: 065
  8. AKINETON [Concomitant]
     Dosage: 9AM, 3PM, 9PM
     Route: 065
  9. EQUILID [Concomitant]
     Indication: PSYCHOTIC DISORDER
     Dosage: 9AM, 3 PM, 9PM
     Route: 065
  10. EQUILID [Concomitant]
     Indication: PSYCHOTIC DISORDER
     Route: 065
     Dates: end: 201208
  11. NEULEPTIL [Concomitant]
     Indication: PSYCHOTIC DISORDER
     Route: 065
  12. NEULEPTIL [Concomitant]
     Indication: PSYCHOTIC DISORDER
     Dosage: 25 drops
     Route: 065
     Dates: end: 201208
  13. NEULEPTIL [Concomitant]
     Indication: PSYCHOTIC DISORDER
     Route: 065
  14. NEULEPTIL [Concomitant]
     Indication: SCHIZOPHRENIA
     Route: 065
  15. NEULEPTIL [Concomitant]
     Indication: SCHIZOPHRENIA
     Route: 065
  16. NEULEPTIL [Concomitant]
     Indication: SCHIZOPHRENIA
     Dosage: 25 drops
     Route: 065
     Dates: end: 201208

REACTIONS (18)
  - Psychotic disorder [Recovering/Resolving]
  - Agitation [Recovering/Resolving]
  - Cognitive disorder [Recovered/Resolved]
  - Weight increased [Not Recovered/Not Resolved]
  - Blood cholesterol increased [Not Recovered/Not Resolved]
  - Blood triglycerides increased [Not Recovered/Not Resolved]
  - Ejaculation disorder [Not Recovered/Not Resolved]
  - Blood prolactin increased [Not Recovered/Not Resolved]
  - Increased appetite [Not Recovered/Not Resolved]
  - Constipation [Not Recovered/Not Resolved]
  - Somnolence [Not Recovered/Not Resolved]
  - Hypervigilance [Not Recovered/Not Resolved]
  - Repetitive speech [Recovering/Resolving]
  - Sedation [Not Recovered/Not Resolved]
  - Abdominal pain [Not Recovered/Not Resolved]
  - Application site pain [Not Recovered/Not Resolved]
  - Application site nodule [Not Recovered/Not Resolved]
  - Application site induration [Not Recovered/Not Resolved]
